FAERS Safety Report 8027836-2 (Version None)
Quarter: 2012Q1

REPORT INFORMATION
  Report Type: 
  Country: None (occurrence: None)
  Receive Date: 20120106
  Receipt Date: 20111229
  Transmission Date: 20120608
  Serious: Yes (Hospitalization)
  Sender: FDA-Public Use
  Company Number: US-BAYER-2012-000131

PATIENT
  Age: 21 Year
  Sex: Female
  Weight: 84 kg

DRUGS (8)
  1. YAZ [Suspect]
     Indication: ACNE
  2. YASMIN [Suspect]
     Indication: ACNE
  3. CIPROFLOXACIN [Concomitant]
     Route: 042
  4. YASMIN [Suspect]
     Indication: ORAL CONTRACEPTION
     Dosage: UNK
     Route: 048
     Dates: start: 20050101, end: 20080101
  5. PHENERGAN [Concomitant]
     Indication: NAUSEA
  6. YAZ [Suspect]
     Indication: ORAL CONTRACEPTION
     Dosage: UNK
     Route: 048
     Dates: start: 20050101, end: 20080101
  7. NUBAIN [Concomitant]
     Indication: PAIN
  8. NSAID'S [Concomitant]

REACTIONS (3)
  - WEIGHT INCREASED [None]
  - CHOLECYSTITIS ACUTE [None]
  - GALLBLADDER DISORDER [None]
